FAERS Safety Report 12632490 (Version 2)
Quarter: 2016Q3

REPORT INFORMATION
  Report Type: Spontaneous
  Country: US (occurrence: US)
  Receive Date: 20160808
  Receipt Date: 20160808
  Transmission Date: 20161109
  Serious: No
  Sender: FDA-Public Use
  Company Number: US-BEH-2015055328

PATIENT
  Sex: Female
  Weight: 60 kg

DRUGS (14)
  1. ADVIL [Concomitant]
     Active Substance: IBUPROFEN
  2. FLONASE [Concomitant]
     Active Substance: FLUTICASONE PROPIONATE
  3. ADVAIR HFA [Concomitant]
     Active Substance: FLUTICASONE PROPIONATE\SALMETEROL XINAFOATE
  4. HIZENTRA [Suspect]
     Active Substance: HUMAN IMMUNOGLOBULIN G
     Route: 058
  5. ACETAMINOPHEN. [Concomitant]
     Active Substance: ACETAMINOPHEN
  6. EPIPEN [Concomitant]
     Active Substance: EPINEPHRINE
  7. LIDOCAINE/PRILOCAINE [Concomitant]
     Active Substance: LIDOCAINE\PRILOCAINE
  8. XANAX [Concomitant]
     Active Substance: ALPRAZOLAM
  9. SINGULAIR [Concomitant]
     Active Substance: MONTELUKAST SODIUM
  10. DIPHENHYDRAMINE. [Concomitant]
     Active Substance: DIPHENHYDRAMINE
  11. ZYRTEC [Concomitant]
     Active Substance: CETIRIZINE HYDROCHLORIDE
  12. HIZENTRA [Suspect]
     Active Substance: HUMAN IMMUNOGLOBULIN G
     Indication: IMMUNODEFICIENCY COMMON VARIABLE
     Route: 058
  13. LIDOCAINE. [Concomitant]
     Active Substance: LIDOCAINE
  14. ANTAC [Concomitant]

REACTIONS (1)
  - Chronic sinusitis [Unknown]
